FAERS Safety Report 6713457-8 (Version None)
Quarter: 2010Q2

REPORT INFORMATION
  Report Type: 
  Country: None (occurrence: None)
  Receive Date: 20100504
  Receipt Date: 20100422
  Transmission Date: 20101027
  Serious: Yes (Congenital Anomaly)
  Sender: FDA-Public Use
  Company Number: 167-20484-09090451

PATIENT
  Sex: Male
  Weight: 3.62 kg

DRUGS (5)
  1. INNOHEP [Suspect]
     Indication: DRUG EXPOSURE DURING PREGNANCY
     Dosage: TRANSPLANCENTAL
     Route: 064
  2. NIFEDIPINE [Concomitant]
  3. BETAMETHASONE [Concomitant]
  4. ENTONOX (OXYGEN, NITROUS OXIDE) [Concomitant]
  5. SYNTOMETRINE (OXYTOCIN, ERGOMETRINE) [Concomitant]

REACTIONS (2)
  - CONGENITAL HYDRONEPHROSIS [None]
  - MATERNAL DRUGS AFFECTING FOETUS [None]
